FAERS Safety Report 6925020-4 (Version None)
Quarter: 2010Q3

REPORT INFORMATION
  Report Type: 
  Country: None (occurrence: None)
  Receive Date: 20100816
  Receipt Date: 20100806
  Transmission Date: 20110219
  Serious: Yes (Congenital Anomaly)
  Sender: FDA-Public Use
  Company Number: CH-PFIZER INC-2010088875

PATIENT
  Sex: Female

DRUGS (2)
  1. ZOLOFT [Suspect]
     Dosage: 50 MG, 1X/DAY
     Route: 064
  2. SEROQUEL [Suspect]
     Dosage: 300 MG, 1X/DAY
     Route: 064
     Dates: start: 20090101

REACTIONS (2)
  - DRUG EXPOSURE DURING PREGNANCY [None]
  - PIERRE ROBIN SYNDROME [None]
